FAERS Safety Report 15227215 (Version 1)
Quarter: 2018Q3

REPORT INFORMATION
  Report Type: Spontaneous
  Country: US (occurrence: US)
  Receive Date: 20180706
  Receipt Date: 20180706
  Transmission Date: 20181010
  Serious: Yes (Other)
  Sender: FDA-Public Use
  Company Number: None

PATIENT
  Age: 52 Year
  Sex: Female
  Weight: 54.43 kg

DRUGS (3)
  1. EMBEDA [Suspect]
     Active Substance: MORPHINE SULFATE\NALTREXONE HYDROCHLORIDE
     Indication: PAIN
     Route: 048
     Dates: start: 20151228, end: 20160328
  2. EMBEDA [Suspect]
     Active Substance: MORPHINE SULFATE\NALTREXONE HYDROCHLORIDE
     Indication: INTERVERTEBRAL DISC DEGENERATION
     Route: 048
     Dates: start: 20151228, end: 20160328
  3. EMBEDA [Suspect]
     Active Substance: MORPHINE SULFATE\NALTREXONE HYDROCHLORIDE
     Indication: SPINAL COLUMN STENOSIS
     Route: 048
     Dates: start: 20151228, end: 20160328

REACTIONS (11)
  - Irritability [None]
  - Dizziness [None]
  - Hypersensitivity [None]
  - Fatigue [None]
  - Headache [None]
  - Myalgia [None]
  - Serotonin syndrome [None]
  - Muscle spasms [None]
  - Hyperhidrosis [None]
  - Pruritus [None]
  - Drug ineffective [None]

NARRATIVE: CASE EVENT DATE: 20150110
